FAERS Safety Report 24968150 (Version 1)
Quarter: 2025Q1

REPORT INFORMATION
  Report Type: Spontaneous
  Country: CA (occurrence: CA)
  Receive Date: 20250214
  Receipt Date: 20250214
  Transmission Date: 20250408
  Serious: Yes (Other)
  Sender: CSL BEHRING
  Company Number: CA-BEH-2025195194

PATIENT
  Age: 49 Week
  Sex: Male

DRUGS (1)
  1. HUMAN IMMUNOGLOBULIN G [Suspect]
     Active Substance: HUMAN IMMUNOGLOBULIN G
     Indication: Kawasaki^s disease
     Route: 065

REACTIONS (4)
  - Fatigue [Unknown]
  - Haemoglobin decreased [Unknown]
  - Jaundice [Unknown]
  - Tachycardia [Unknown]
